FAERS Safety Report 7221789-2 (Version None)
Quarter: 2011Q1

REPORT INFORMATION
  Report Type: 
  Country: None (occurrence: None)
  Receive Date: 20110104
  Receipt Date: 20091207
  Transmission Date: 20110831
  Serious: Yes (Life-Threatening, Hospitalization)
  Sender: FDA-Public Use
  Company Number: DSA_42146_2009

PATIENT
  Age: 53 Year
  Sex: Female

DRUGS (5)
  1. MEFENOKSALON [Concomitant]
  2. PARACETAMOL [Suspect]
     Indication: PRODUCT USED FOR UNKNOWN INDICATION
     Dosage: 450 MG FREQUENCY UNSPECIFIED
  3. DILTIAZEM [Suspect]
     Indication: PRODUCT USED FOR UNKNOWN INDICATION
     Dosage: 30 MG  FREQUENCY UNSPECIFIED
  4. AMITRIPTILINA [Concomitant]
  5. DICLOFENAC POTASSIUM [Concomitant]

REACTIONS (1)
  - ACUTE GENERALISED EXANTHEMATOUS PUSTULOSIS [None]
